FAERS Safety Report 9159057 (Version 1)
Quarter: 2013Q1

REPORT INFORMATION
  Report Type: Spontaneous
  Country: JP (occurrence: None)
  Receive Date: 20130311
  Receipt Date: 20130311
  Transmission Date: 20140127
  Serious: Yes (Death)
  Sender: FDA-Public Use
  Company Number: SYM-2013-01454

PATIENT
  Age: 72 Year
  Sex: Male

DRUGS (3)
  1. FLUOROURACIL [Suspect]
     Indication: LARYNGEAL CANCER
     Dosage: 700 MG/M2 FEW DAY(S)
  2. CISPLATIN [Suspect]
     Indication: LARYNGEAL CANCER
     Dosage: 60 MG/M2, EVERY CYCLE FEW DAY(S)
  3. TAXOTERE [Suspect]
     Indication: LARYNGEAL CANCER
     Dosage: 60 MG/M2, EVERY CYCLE, FEW DAY(S)

REACTIONS (6)
  - Bone marrow failure [None]
  - Pneumonia [None]
  - Staphylococcal infection [None]
  - Fungal infection [None]
  - Acute respiratory distress syndrome [None]
  - Septic shock [None]
